FAERS Safety Report 25899949 (Version 1)
Quarter: 2025Q4

REPORT INFORMATION
  Report Type: Spontaneous
  Country: US (occurrence: US)
  Receive Date: 20251009
  Receipt Date: 20251009
  Transmission Date: 20260118
  Serious: No
  Sender: AMGEN
  Company Number: US-AMGEN-USASP2025197851

PATIENT
  Sex: Female

DRUGS (3)
  1. REPATHA [Suspect]
     Active Substance: EVOLOCUMAB
     Indication: Low density lipoprotein abnormal
     Dosage: 140 MILLIGRAM, Q2WK (EVERY OTHER THURSDAY)
     Route: 065
     Dates: start: 2025
  2. MOUNJARO [Concomitant]
     Active Substance: TIRZEPATIDE
  3. LOVENOX [Concomitant]
     Active Substance: ENOXAPARIN SODIUM

REACTIONS (2)
  - Injection site pruritus [Recovered/Resolved]
  - Injection site erythema [Recovered/Resolved]
